FAERS Safety Report 9227916 (Version 2)
Quarter: 2013Q3

REPORT INFORMATION
  Report Type: Spontaneous
  Country: FR (occurrence: FR)
  Receive Date: 20130412
  Receipt Date: 20130711
  Transmission Date: 20140515
  Serious: Yes (Other)
  Sender: FDA-Public Use
  Company Number: FR-PFIZER INC-2013112368

PATIENT
  Age: 35 Year
  Sex: Male
  Weight: 100 kg

DRUGS (5)
  1. ATORVASTATINE PFIZER [Suspect]
     Indication: HYPERCHOLESTEROLAEMIA
     Dosage: 10 MG, DAILY IN THE MORNING
     Dates: start: 20120423, end: 20130405
  2. SYCREST [Suspect]
     Indication: SCHIZOPHRENIA
     Dosage: 10 MG, DAILY IN THE EVENING
     Route: 060
     Dates: start: 201301
  3. EFFEXOR - SLOW RELEASE [Concomitant]
     Dosage: UNK
  4. ATENOLOL [Concomitant]
     Dosage: UNK
  5. LOXAPAC [Concomitant]
     Dosage: UNK

REACTIONS (4)
  - Monoparesis [Unknown]
  - Tendinous contracture [Recovering/Resolving]
  - Musculoskeletal stiffness [Recovering/Resolving]
  - Posture abnormal [Unknown]
